FAERS Safety Report 5273104-1 (Version None)
Quarter: 2007Q1

REPORT INFORMATION
  Report Type: 
  Country: None (occurrence: None)
  Receive Date: 20070322
  Receipt Date: 20070312
  Transmission Date: 20070707
  Serious: Yes (Other)
  Sender: FDA-Public Use
  Company Number: FR-PFIZER INC-2007017480

PATIENT
  Sex: Female

DRUGS (7)
  1. CHAMPIX [Suspect]
     Route: 048
     Dates: start: 20070227, end: 20070311
  2. OXYGEN [Concomitant]
  3. VERAPAMIL [Concomitant]
  4. NITROGLYCERIN [Concomitant]
  5. ALDACTAZINE [Concomitant]
  6. SPIRIVA [Concomitant]
  7. DAFLON [Concomitant]

REACTIONS (6)
  - BLOOD PRESSURE DECREASED [None]
  - COUGH [None]
  - DYSGEUSIA [None]
  - NAUSEA [None]
  - SLEEP DISORDER [None]
  - VERTIGO [None]
